FAERS Safety Report 10192415 (Version 2)
Quarter: 2014Q2

REPORT INFORMATION
  Report Type: Spontaneous
  Country: FR (occurrence: FR)
  Receive Date: 20140523
  Receipt Date: 20140617
  Transmission Date: 20141212
  Serious: Yes (Other)
  Sender: FDA-Public Use
  Company Number: FR-BRISTOL-MYERS SQUIBB COMPANY-20789053

PATIENT
  Age: 20 Year
  Sex: Female

DRUGS (2)
  1. ABILIFY TABS 30 MG [Suspect]
     Indication: BIPOLAR DISORDER
     Dosage: MAR2014: DOSE REDUCED TO 20 MG/DAY
     Route: 048
  2. LOXAPAC [Concomitant]
     Dates: end: 201403

REACTIONS (4)
  - Photophobia [Recovered/Resolved]
  - Blepharitis [Recovered/Resolved]
  - Keratitis [Recovered/Resolved]
  - Xerophthalmia [Recovered/Resolved]
